FAERS Safety Report 9530884 (Version 1)
Quarter: 2013Q1

REPORT INFORMATION
  Report Type: Spontaneous
  Country: US (occurrence: None)
  Receive Date: 20130315
  Receipt Date: 20130315
  Transmission Date: 20140127
  Serious: Yes (Other)
  Sender: FDA-Public Use
  Company Number: US-JNJFOC-20120407047

PATIENT
  Age: 63 Year
  Sex: Female
  Weight: 76.2 kg

DRUGS (6)
  1. MOTRIN (IBUPROFEN) TABLETS [Suspect]
     Indication: PAIN
  2. VENLAFAXINE HYDROCHLORIDE (VENLAFAXINE HYDROCHLORIDE) PROLONGED-RELEASE CAPSULE [Suspect]
  3. VENLAFAXINE HYDROCHLORIDE (VENLAFAXINE HYDROCHLORIDE) PROLONGED-RELEASE CAPSULE [Suspect]
  4. ANTIDEPRESSANT MEDICATION, NOS (ANTIDEPRESSANTS) UNSPECIFIED) [Suspect]
  5. AN UNKNOWN MEDICATION (ALL OTHER THERAPEUTIC PRODUCTS) UNSPECIFIED [Suspect]
  6. CYTOMEL (LIOTHYRONINE SODIUM) [Concomitant]

REACTIONS (8)
  - Major depression [None]
  - Activities of daily living impaired [None]
  - Anxiety [None]
  - Emotional disorder [None]
  - Fatigue [None]
  - Movement disorder [None]
  - Nausea [None]
  - Drug ineffective [None]
